FAERS Safety Report 9492955 (Version 2)
Quarter: 2014Q1

REPORT INFORMATION
  Report Type: Report from Study
  Country: US (occurrence: US)
  Receive Date: 20130902
  Receipt Date: 20140101
  Transmission Date: 20141002
  Serious: Yes (Death, Hospitalization, Other)
  Sender: FDA-Public Use
  Company Number: US-ROCHE-1267436

PATIENT
  Sex: Male

DRUGS (4)
  1. AVASTIN [Suspect]
     Indication: NEUROENDOCRINE TUMOUR
     Dosage: EVERY OTHER WEEK DOSING, LAST DOSE ON 16/APR/2013
     Route: 065
  2. AVASTIN [Suspect]
     Indication: METASTASES TO NERVOUS SYSTEM
  3. NORVASC [Concomitant]
  4. LISINOPRIL [Concomitant]

REACTIONS (10)
  - Neuroendocrine tumour [Fatal]
  - Infection [Recovered/Resolved]
  - Constipation [Recovered/Resolved]
  - Mental status changes [Unknown]
  - Disease progression [Unknown]
  - Performance status decreased [Unknown]
  - Musculoskeletal discomfort [Unknown]
  - Weight decreased [Unknown]
  - Melanoma recurrent [Unknown]
  - Blood pressure increased [Unknown]
